FAERS Safety Report 18240355 (Version 1)
Quarter: 2020Q3

REPORT INFORMATION
  Report Type: Spontaneous
  Country: JP (occurrence: JP)
  Receive Date: 20200908
  Receipt Date: 20200908
  Transmission Date: 20201103
  Serious: Yes (Other)
  Sender: FDA-Public Use
  Company Number: JP-ASTELLAS-2020JP013089

PATIENT
  Sex: Female

DRUGS (1)
  1. VESICARE [Suspect]
     Active Substance: SOLIFENACIN SUCCINATE
     Indication: POLLAKIURIA
     Dosage: 5 MG, ONCE DAILY, IN THE EVENING (AT AROUND 20:00)
     Route: 048

REACTIONS (13)
  - Urinary retention [Unknown]
  - Insomnia [Unknown]
  - Frequent bowel movements [Unknown]
  - Drug ineffective [Unknown]
  - Immobile [Unknown]
  - Poor sanitation [Unknown]
  - Dizziness [Unknown]
  - Sitting disability [Unknown]
  - Pollakiuria [Unknown]
  - Fall [Unknown]
  - Pain in extremity [Unknown]
  - Nocturia [Unknown]
  - Gait inability [Unknown]
